FAERS Safety Report 7355063-0 (Version None)
Quarter: 2011Q1

REPORT INFORMATION
  Report Type: 
  Country: None (occurrence: None)
  Receive Date: 20110316
  Receipt Date: 20110301
  Transmission Date: 20110831
  Serious: Yes (Hospitalization)
  Sender: FDA-Public Use
  Company Number: JP-PFIZER INC-2011048216

PATIENT
  Age: 57 Year
  Sex: Male

DRUGS (6)
  1. SEIBULE [Suspect]
     Indication: HYPERGLYCAEMIA
     Dosage: 50 MG, 2X/DAY
     Route: 048
     Dates: start: 20080513, end: 20090728
  2. SEIBULE [Suspect]
     Dosage: 50 MG, 3X/DAY
     Dates: start: 20100414
  3. VALSARTAN [Concomitant]
     Dosage: 40 MG, 1X/DAY
     Dates: start: 20100414
  4. VALSARTAN [Concomitant]
     Indication: HYPERTENSION
     Dosage: UNK
     Dates: start: 20011203, end: 20100105
  5. ADALAT CC [Concomitant]
     Indication: HYPERTENSION
     Dosage: UNK
     Dates: start: 20080513, end: 20100105
  6. SEIBULE [Suspect]
     Indication: GLUCOSE TOLERANCE IMPAIRED
     Dosage: 50 MG, 3X/DAY
     Route: 048
     Dates: start: 20090729, end: 20091216

REACTIONS (2)
  - GASTRIC CANCER [None]
  - ILEUS [None]
